FAERS Safety Report 10680636 (Version 2)
Quarter: 2015Q4

REPORT INFORMATION
  Report Type: Spontaneous
  Country: US (occurrence: US)
  Receive Date: 20141229
  Receipt Date: 20151228
  Transmission Date: 20160304
  Serious: Yes (Hospitalization)
  Sender: FDA-Public Use
  Company Number: US-SA-2014SA118593

PATIENT
  Age: 67 Year
  Sex: Female

DRUGS (7)
  1. WARFARIN [Concomitant]
     Active Substance: WARFARIN
     Dosage: FILLED 1/17/14, 2/14/12, 2/22/12, 6/1/12
  2. SYNTHROID [Concomitant]
     Active Substance: LEVOTHYROXINE SODIUM
  3. ASPIRIN. [Concomitant]
     Active Substance: ASPIRIN
  4. ULTRAM [Concomitant]
     Active Substance: TRAMADOL HYDROCHLORIDE
     Indication: PAIN
  5. PLAVIX [Suspect]
     Active Substance: CLOPIDOGREL BISULFATE
     Indication: TRANSIENT ISCHAEMIC ATTACK
     Route: 048
     Dates: start: 20071010, end: 20090803
  6. PLAVIX [Suspect]
     Active Substance: CLOPIDOGREL BISULFATE
     Indication: CEREBROVASCULAR ACCIDENT
     Route: 048
     Dates: start: 20071010, end: 20090803
  7. TRICOR [Concomitant]
     Active Substance: FENOFIBRATE

REACTIONS (2)
  - Ulcer [Unknown]
  - Gastrointestinal haemorrhage [Unknown]

NARRATIVE: CASE EVENT DATE: 20081119
